FAERS Safety Report 12136493 (Version 1)
Quarter: 2016Q1

REPORT INFORMATION
  Report Type: Spontaneous
  Country: US (occurrence: None)
  Receive Date: 20160301
  Receipt Date: 20160301
  Transmission Date: 20160526
  Serious: No
  Sender: FDA-Public Use
  Company Number: None

PATIENT
  Age: 78 Year
  Sex: Female

DRUGS (21)
  1. BREO ELLIPTA [Concomitant]
     Active Substance: FLUTICASONE FUROATE\VILANTEROL TRIFENATATE
  2. ASPIRIN. [Concomitant]
     Active Substance: ASPIRIN
  3. PROAIR HFA [Concomitant]
     Active Substance: ALBUTEROL SULFATE
  4. ONDANSETRON [Concomitant]
     Active Substance: ONDANSETRON
  5. SIMVASTATIN. [Concomitant]
     Active Substance: SIMVASTATIN
  6. LYRICA [Concomitant]
     Active Substance: PREGABALIN
  7. METFORMIN [Concomitant]
     Active Substance: METFORMIN HYDROCHLORIDE
  8. CALCIUM CARB [Concomitant]
  9. DOXYCYCLINE. [Concomitant]
     Active Substance: DOXYCYCLINE
  10. POT CHLOR [Concomitant]
  11. FLUTICASONE [Concomitant]
     Active Substance: FLUTICASONE\FLUTICASONE PROPIONATE
  12. CARVEDILOL. [Concomitant]
     Active Substance: CARVEDILOL
  13. AZITHROMYCIN ANHYDROUS. [Concomitant]
     Active Substance: AZITHROMYCIN ANHYDROUS
  14. ALPRAZOLAM. [Concomitant]
     Active Substance: ALPRAZOLAM
  15. IBRANCE [Suspect]
     Active Substance: PALBOCICLIB
     Indication: BREAST CANCER
     Route: 048
     Dates: start: 20160219
  16. FASLODEX [Concomitant]
     Active Substance: FULVESTRANT
  17. SPIRIVA [Concomitant]
     Active Substance: TIOTROPIUM BROMIDE MONOHYDRATE
  18. LETROZOLE. [Concomitant]
     Active Substance: LETROZOLE
  19. PREDNISONE. [Concomitant]
     Active Substance: PREDNISONE
  20. GABAPENTIN. [Concomitant]
     Active Substance: GABAPENTIN
  21. SYNTHROID [Concomitant]
     Active Substance: LEVOTHYROXINE SODIUM

REACTIONS (1)
  - Cough [None]

NARRATIVE: CASE EVENT DATE: 20160219
